FAERS Safety Report 20304714 (Version 1)
Quarter: 2022Q1

REPORT INFORMATION
  Report Type: Spontaneous
  Country: AU (occurrence: None)
  Receive Date: 20220105
  Receipt Date: 20220105
  Transmission Date: 20220424
  Serious: Yes (Hospitalization, Other)
  Sender: FDA-Public Use
  Company Number: None

PATIENT
  Age: 53 Year
  Sex: Female
  Weight: 52 kg

DRUGS (6)
  1. LYRICA [Suspect]
     Active Substance: PREGABALIN
     Indication: Neuralgia
     Dosage: FREQUENCY : TWICE A DAY;?
     Route: 048
  2. ZOLOFT [Concomitant]
     Active Substance: SERTRALINE HYDROCHLORIDE
  3. VALIUM [Concomitant]
     Active Substance: DIAZEPAM
  4. paracetemol [Concomitant]
  5. Blackmores [Concomitant]
  6. MAGNESIUM [Concomitant]
     Active Substance: MAGNESIUM

REACTIONS (20)
  - Dyskinesia [None]
  - Muscle twitching [None]
  - Drug withdrawal syndrome [None]
  - Cerebrovascular accident [None]
  - Tremor [None]
  - Anxiety [None]
  - Muscle twitching [None]
  - Amnesia [None]
  - Anger [None]
  - Depressed mood [None]
  - Product complaint [None]
  - Drug dependence [None]
  - Drug dependence [None]
  - Balance disorder [None]
  - Vertigo [None]
  - Burning sensation [None]
  - Confusional state [None]
  - Delirium [None]
  - Palpitations [None]
  - Paralysis [None]

NARRATIVE: CASE EVENT DATE: 20211208
